FAERS Safety Report 5139699-3 (Version None)
Quarter: 2006Q4

REPORT INFORMATION
  Report Type: 
  Country: None (occurrence: None)
  Receive Date: 20061030
  Receipt Date: 20060928
  Transmission Date: 20070319
  Serious: Yes (Hospitalization)
  Sender: FDA-Public Use
  Company Number: JP-ALLERGAN-0605760US

PATIENT
  Sex: Male
  Weight: 16.4 kg

DRUGS (3)
  1. ALESION SYRUP [Suspect]
     Indication: ECZEMA
     Dosage: 8 MG, UNK
     Route: 048
     Dates: start: 20060919, end: 20060919
  2. PETROLATUM SALICYLICUM [Concomitant]
     Indication: ECZEMA
     Dosage: UNK, TID
     Route: 061
     Dates: start: 20060919
  3. LOCOID                             /00028605/ [Concomitant]
     Indication: ECZEMA
     Dosage: UNK, TID
     Route: 061
     Dates: start: 20060919

REACTIONS (4)
  - CHILLS [None]
  - DEPRESSED LEVEL OF CONSCIOUSNESS [None]
  - DYSKINESIA [None]
  - HEADACHE [None]
